FAERS Safety Report 18725342 (Version 1)
Quarter: 2021Q1

REPORT INFORMATION
  Report Type: Report from Study
  Country: CN (occurrence: CN)
  Receive Date: 20210111
  Receipt Date: 20210111
  Transmission Date: 20210419
  Serious: Yes (Other)
  Sender: FDA-Public Use
  Company Number: CN-PFIZER INC-2021001926

PATIENT
  Age: 2 Month
  Sex: Male

DRUGS (4)
  1. METHYLPREDNISOLONE. [Suspect]
     Active Substance: METHYLPREDNISOLONE
     Indication: ANGIOSARCOMA
     Route: 048
  2. SIROLIMUS. [Suspect]
     Active Substance: SIROLIMUS
  3. VINCRISTINE [Suspect]
     Active Substance: VINCRISTINE
     Indication: ANGIOSARCOMA
  4. PROPRANOLOL [Suspect]
     Active Substance: PROPRANOLOL HYDROCHLORIDE
     Indication: ANGIOSARCOMA

REACTIONS (2)
  - Cachexia [Unknown]
  - Short stature [Unknown]
